FAERS Safety Report 25012819 (Version 1)
Quarter: 2025Q1

REPORT INFORMATION
  Report Type: Report from Study
  Country: US (occurrence: US)
  Receive Date: 20250226
  Receipt Date: 20250226
  Transmission Date: 20250409
  Serious: Yes (Hospitalization)
  Sender: EXELIXIS
  Company Number: US-EXELIXIS-EXL-2024-003575

PATIENT
  Sex: Female

DRUGS (2)
  1. CABOMETYX [Suspect]
     Active Substance: CABOZANTINIB S-MALATE
     Indication: Renal cancer
     Dosage: 40 MG, QD
     Route: 048
     Dates: start: 20241119
  2. CABOMETYX [Suspect]
     Active Substance: CABOZANTINIB S-MALATE
     Indication: Metastases to the mediastinum
     Dosage: 60 MG, QD
     Route: 048

REACTIONS (6)
  - Adverse drug reaction [Unknown]
  - Dry skin [Unknown]
  - Stomatitis [Unknown]
  - Thyroid disorder [Unknown]
  - Liver disorder [Not Recovered/Not Resolved]
  - Oropharyngeal pain [Unknown]
